FAERS Safety Report 13942030 (Version 1)
Quarter: 2017Q3

REPORT INFORMATION
  Report Type: Spontaneous
  Country: FR (occurrence: FR)
  Receive Date: 20170906
  Receipt Date: 20170906
  Transmission Date: 20171127
  Serious: Yes (Death, Life-Threatening, Hospitalization)
  Sender: FDA-Public Use
  Company Number: FR-SA-2017SA159256

PATIENT
  Age: 82 Year
  Sex: Male

DRUGS (8)
  1. BACTRIM [Concomitant]
     Active Substance: SULFAMETHOXAZOLE\TRIMETHOPRIM
     Route: 048
  2. SPECIAFOLDINE [Concomitant]
     Active Substance: FOLIC ACID
     Route: 048
  3. VITAMIN B12 [Concomitant]
     Active Substance: CYANOCOBALAMIN
     Route: 030
  4. LOVENOX [Suspect]
     Active Substance: ENOXAPARIN SODIUM
     Route: 058
     Dates: start: 20170728
  5. MOPRAL [Concomitant]
     Active Substance: OMEPRAZOLE SODIUM
     Route: 048
  6. FUMAFER [Concomitant]
     Active Substance: FERROUS FUMARATE
     Indication: DYSLIPIDAEMIA
     Route: 048
  7. PREDNISONE. [Concomitant]
     Active Substance: PREDNISONE
     Route: 048
  8. METFORMIN [Suspect]
     Active Substance: METFORMIN HYDROCHLORIDE
     Indication: DIABETES MELLITUS
     Route: 048
     Dates: end: 2017

REACTIONS (9)
  - Respiratory arrest [Recovered/Resolved]
  - Stress cardiomyopathy [Fatal]
  - Melaena [Unknown]
  - Shock [Fatal]
  - Hypothermia [Unknown]
  - Atrioventricular block complete [Fatal]
  - Lactic acidosis [Fatal]
  - Haemorrhage [Unknown]
  - Coma [Not Recovered/Not Resolved]

NARRATIVE: CASE EVENT DATE: 20170802
